FAERS Safety Report 24043626 (Version 2)
Quarter: 2024Q3

REPORT INFORMATION
  Report Type: Report from Study
  Country: US (occurrence: US)
  Receive Date: 20240703
  Receipt Date: 20240704
  Transmission Date: 20241016
  Serious: Yes (Hospitalization, Other)
  Sender: ABBVIE
  Company Number: US-ABBVIE-5819879

PATIENT
  Age: 82 Year
  Sex: Male
  Weight: 59.9 kg

DRUGS (19)
  1. HUMIRA [Suspect]
     Active Substance: ADALIMUMAB
     Indication: Crohn^s disease
     Dosage: FORM STRENGTH: 40 MG
     Route: 058
     Dates: start: 2021, end: 20240615
  2. ZOLOFT [Concomitant]
     Active Substance: SERTRALINE HYDROCHLORIDE
     Indication: Anxiety
  3. BACLOFEN [Concomitant]
     Active Substance: BACLOFEN
     Indication: Product used for unknown indication
  4. AMLODIPINE [Concomitant]
     Active Substance: AMLODIPINE BESYLATE
     Indication: Blood pressure abnormal
  5. FOLIC ACID [Concomitant]
     Active Substance: FOLIC ACID
     Indication: Vitamin supplementation
  6. CARVEDILOL [Concomitant]
     Active Substance: CARVEDILOL
     Indication: Blood pressure abnormal
  7. ANTIVERT [Concomitant]
     Active Substance: MECLIZINE HYDROCHLORIDE
     Indication: Vertigo
  8. REMERON [Concomitant]
     Active Substance: MIRTAZAPINE
     Indication: Anxiety
  9. SULFASALAZINE [Concomitant]
     Active Substance: SULFASALAZINE
     Indication: Crohn^s disease
  10. MEGESTROL [Concomitant]
     Active Substance: MEGESTROL
     Indication: Appetite disorder
  11. IMODIUM [Concomitant]
     Active Substance: LOPERAMIDE HYDROCHLORIDE
     Indication: Diarrhoea
  12. ATIVAN [Concomitant]
     Active Substance: LORAZEPAM
     Indication: Anxiety
  13. Capcid [Concomitant]
     Indication: Gastrointestinal disorder
  14. ARANESP [Concomitant]
     Active Substance: DARBEPOETIN ALFA
     Indication: Full blood count abnormal
  15. GABAPENTIN [Concomitant]
     Active Substance: GABAPENTIN
     Indication: Neuropathy peripheral
  16. XARELTO [Concomitant]
     Active Substance: RIVAROXABAN
     Indication: Coagulopathy
  17. CALCIUM CARBONATE [Concomitant]
     Active Substance: CALCIUM CARBONATE
     Indication: Bone disorder
  18. MICARDIS [Concomitant]
     Active Substance: TELMISARTAN
     Indication: Blood pressure abnormal
  19. LEVOTHYROXINE [Concomitant]
     Active Substance: LEVOTHYROXINE\LEVOTHYROXINE SODIUM
     Indication: Hypothyroidism

REACTIONS (12)
  - Pneumonia aspiration [Recovered/Resolved]
  - Hospice care [Not Recovered/Not Resolved]
  - Procedural haemorrhage [Recovering/Resolving]
  - Rehabilitation therapy [Recovered/Resolved]
  - Complication of device insertion [Recovering/Resolving]
  - Mechanical ventilation [Recovered/Resolved]
  - Oxygen saturation decreased [Not Recovered/Not Resolved]
  - Diarrhoea [Recovered/Resolved]
  - Vomiting [Recovering/Resolving]
  - Dehydration [Recovering/Resolving]
  - Surgery [Recovering/Resolving]
  - Gastrointestinal tube insertion [Recovering/Resolving]

NARRATIVE: CASE EVENT DATE: 20240501
